FAERS Safety Report 16252009 (Version 1)
Quarter: 2019Q2

REPORT INFORMATION
  Report Type: Spontaneous
  Country: PL (occurrence: PL)
  Receive Date: 20190429
  Receipt Date: 20190429
  Transmission Date: 20190711
  Serious: Yes (Hospitalization, Other)
  Sender: FDA-Public Use
  Company Number: PL-TEVA-2019-PL-1042351

PATIENT
  Age: 70 Year
  Sex: Male

DRUGS (51)
  1. METOCLOPRAMID [Concomitant]
     Active Substance: METOCLOPRAMIDE
     Indication: ENTEROCOCCAL SEPSIS
  2. FUROSEMID [Concomitant]
     Active Substance: FUROSEMIDE
     Indication: KLEBSIELLA SEPSIS
  3. KABIVEN [Concomitant]
     Active Substance: AMINO ACIDS\ANHYDROUS DEXTROSE\CALCIUM CHLORIDE\MAGNESIUM SULFATE HEPTAHYDRATE\POTASSIUM CHLORIDE\SODIUM ACETATE\SODIUM GLYCEROPHOSPHATE ANHYDROUS\SOYBEAN OIL
     Indication: ENTEROCOCCAL SEPSIS
  4. ZOFRAN [Concomitant]
     Active Substance: ONDANSETRON HYDROCHLORIDE
     Indication: KLEBSIELLA SEPSIS
  5. CALCIUM [Concomitant]
     Active Substance: CALCIUM
     Indication: ENTEROCOCCAL SEPSIS
     Dosage: DOSE: 1 AMPOULE
     Route: 042
     Dates: start: 20140731, end: 20140827
  6. KABIVEN [Concomitant]
     Active Substance: AMINO ACIDS\ANHYDROUS DEXTROSE\CALCIUM CHLORIDE\MAGNESIUM SULFATE HEPTAHYDRATE\POTASSIUM CHLORIDE\SODIUM ACETATE\SODIUM GLYCEROPHOSPHATE ANHYDROUS\SOYBEAN OIL
     Indication: KLEBSIELLA SEPSIS
  7. BUSCOLYSIN [Concomitant]
     Active Substance: BUTYLSCOPOLAMINE
     Indication: ENTEROCOCCAL SEPSIS
  8. SOLUVIT [Concomitant]
     Active Substance: VITAMINS
     Indication: KLEBSIELLA SEPSIS
  9. KCL [Concomitant]
     Active Substance: POTASSIUM CHLORIDE
     Indication: KLEBSIELLA SEPSIS
  10. IMIPENEM [Concomitant]
     Active Substance: IMIPENEM
     Indication: KLEBSIELLA SEPSIS
  11. KABIVEN [Concomitant]
     Active Substance: AMINO ACIDS\ANHYDROUS DEXTROSE\CALCIUM CHLORIDE\MAGNESIUM SULFATE HEPTAHYDRATE\POTASSIUM CHLORIDE\SODIUM ACETATE\SODIUM GLYCEROPHOSPHATE ANHYDROUS\SOYBEAN OIL
     Indication: STAPHYLOCOCCAL SEPSIS
     Dosage: DOSE UNKNOWN
     Route: 042
     Dates: start: 20140731, end: 20140824
  12. GLYCOPHOS [Concomitant]
     Active Substance: SODIUM GLYCEROPHOSPHATE ANHYDROUS
     Indication: ENTEROCOCCAL SEPSIS
     Dosage: 1/2 AMPOULE
     Route: 065
     Dates: start: 20140731, end: 20140824
  13. SOLUVIT [Concomitant]
     Active Substance: VITAMINS
     Indication: ENTEROCOCCAL SEPSIS
  14. CALCIUM [Concomitant]
     Active Substance: CALCIUM
     Indication: STAPHYLOCOCCAL SEPSIS
  15. LINEZOLID. [Suspect]
     Active Substance: LINEZOLID
     Indication: STAPHYLOCOCCAL SEPSIS
     Route: 042
     Dates: start: 20140731, end: 20140810
  16. LINEZOLID. [Suspect]
     Active Substance: LINEZOLID
     Indication: ENTEROCOCCAL SEPSIS
  17. KCL [Concomitant]
     Active Substance: POTASSIUM CHLORIDE
     Indication: STAPHYLOCOCCAL SEPSIS
  18. METOCLOPRAMID [Concomitant]
     Active Substance: METOCLOPRAMIDE
     Indication: STAPHYLOCOCCAL SEPSIS
  19. ZOFRAN [Concomitant]
     Active Substance: ONDANSETRON HYDROCHLORIDE
     Indication: ENTEROCOCCAL SEPSIS
     Dosage: ONGOING THERAPY
     Route: 042
     Dates: start: 20140731
  20. BUSCOLYSIN [Concomitant]
     Active Substance: BUTYLSCOPOLAMINE
     Indication: STAPHYLOCOCCAL SEPSIS
  21. GLYCOPHOS [Concomitant]
     Active Substance: SODIUM GLYCEROPHOSPHATE ANHYDROUS
     Indication: KLEBSIELLA SEPSIS
  22. MATRIFEN [Concomitant]
     Active Substance: FENTANYL
     Indication: STAPHYLOCOCCAL SEPSIS
     Dosage: DOSAGE: 50 UG.H,  ONGOING THERAPY
     Route: 062
     Dates: start: 20140731
  23. MATRIFEN [Concomitant]
     Active Substance: FENTANYL
     Indication: KLEBSIELLA SEPSIS
  24. METOCLOPRAMID [Concomitant]
     Active Substance: METOCLOPRAMIDE
     Indication: KLEBSIELLA SEPSIS
     Dosage: DOSAGE 2 TIMES 1 AMPOULE A DAY
     Route: 042
     Dates: start: 20140731, end: 20140806
  25. FUROSEMID [Concomitant]
     Active Substance: FUROSEMIDE
     Indication: STAPHYLOCOCCAL SEPSIS
  26. MORPHINE [Concomitant]
     Active Substance: MORPHINE
     Indication: KLEBSIELLA SEPSIS
     Dosage: ONGOING THERAPY
     Route: 058
     Dates: start: 20140731
  27. VITALIPID N ADULT [Concomitant]
     Active Substance: ERGOCALCIFEROL\PHYTONADIONE\RETINOL\TOCOPHEROL
     Indication: ENTEROCOCCAL SEPSIS
     Dosage: 1 AMPOULE
     Route: 042
     Dates: start: 20140731, end: 20140824
  28. VITALIPID N ADULT [Concomitant]
     Active Substance: ERGOCALCIFEROL\PHYTONADIONE\RETINOL\TOCOPHEROL
     Indication: KLEBSIELLA SEPSIS
  29. VITAMIN B1 [Concomitant]
     Active Substance: THIAMINE HYDROCHLORIDE
     Indication: KLEBSIELLA SEPSIS
     Dosage: DOSE UNKNOWN
     Route: 065
     Dates: start: 20140731, end: 20140824
  30. CONTROLOC [Concomitant]
     Active Substance: PANTOPRAZOLE SODIUM
     Indication: KLEBSIELLA SEPSIS
  31. CALCIUM [Concomitant]
     Active Substance: CALCIUM
     Indication: KLEBSIELLA SEPSIS
  32. MATRIFEN [Concomitant]
     Active Substance: FENTANYL
     Indication: ENTEROCOCCAL SEPSIS
  33. KCL [Concomitant]
     Active Substance: POTASSIUM CHLORIDE
     Indication: ENTEROCOCCAL SEPSIS
     Dosage: DOSAGE DEPENDING ON BLOOD LEVELS
     Route: 042
     Dates: start: 20140731
  34. FUROSEMID [Concomitant]
     Active Substance: FUROSEMIDE
     Indication: ENTEROCOCCAL SEPSIS
     Route: 042
     Dates: start: 20140731, end: 20140802
  35. MORPHINE [Concomitant]
     Active Substance: MORPHINE
     Indication: ENTEROCOCCAL SEPSIS
  36. IMIPENEM [Concomitant]
     Active Substance: IMIPENEM
     Indication: STAPHYLOCOCCAL SEPSIS
     Route: 042
     Dates: start: 20140731, end: 20140808
  37. VITALIPID N ADULT [Concomitant]
     Active Substance: ERGOCALCIFEROL\PHYTONADIONE\RETINOL\TOCOPHEROL
     Indication: STAPHYLOCOCCAL SEPSIS
  38. BUSCOLYSIN [Concomitant]
     Active Substance: BUTYLSCOPOLAMINE
     Indication: KLEBSIELLA SEPSIS
     Dosage: 2 TIMES 1 AMPOULE A DAY
     Route: 042
     Dates: start: 20140731, end: 20140820
  39. VITAMIN B1 [Concomitant]
     Active Substance: THIAMINE HYDROCHLORIDE
     Indication: STAPHYLOCOCCAL SEPSIS
  40. GLYCOPHOS [Concomitant]
     Active Substance: SODIUM GLYCEROPHOSPHATE ANHYDROUS
     Indication: STAPHYLOCOCCAL SEPSIS
  41. CONTROLOC [Concomitant]
     Active Substance: PANTOPRAZOLE SODIUM
     Indication: STAPHYLOCOCCAL SEPSIS
     Dosage: ONGOING THERAPY
     Route: 042
     Dates: start: 20140731
  42. LINEZOLID. [Suspect]
     Active Substance: LINEZOLID
     Indication: KLEBSIELLA SEPSIS
  43. PROTIFAR [Concomitant]
     Active Substance: DIETARY SUPPLEMENT
     Indication: ENTEROCOCCAL SEPSIS
     Dosage: 3 TIMES 1 MEASURE; ONGOING THERAPY
     Route: 048
     Dates: start: 20140731
  44. PROTIFAR [Concomitant]
     Active Substance: DIETARY SUPPLEMENT
     Indication: STAPHYLOCOCCAL SEPSIS
  45. IMIPENEM [Concomitant]
     Active Substance: IMIPENEM
     Indication: ENTEROCOCCAL SEPSIS
  46. ZOFRAN [Concomitant]
     Active Substance: ONDANSETRON HYDROCHLORIDE
     Indication: STAPHYLOCOCCAL SEPSIS
  47. VITAMIN B1 [Concomitant]
     Active Substance: THIAMINE HYDROCHLORIDE
     Indication: ENTEROCOCCAL SEPSIS
  48. SOLUVIT [Concomitant]
     Active Substance: VITAMINS
     Indication: STAPHYLOCOCCAL SEPSIS
     Dosage: 1 AMPOULE
     Route: 042
     Dates: start: 20140731, end: 20140824
  49. CONTROLOC [Concomitant]
     Active Substance: PANTOPRAZOLE SODIUM
     Indication: ENTEROCOCCAL SEPSIS
  50. PROTIFAR [Concomitant]
     Active Substance: DIETARY SUPPLEMENT
     Indication: KLEBSIELLA SEPSIS
  51. MORPHINE [Concomitant]
     Active Substance: MORPHINE
     Indication: STAPHYLOCOCCAL SEPSIS

REACTIONS (1)
  - Polyuria [Recovered/Resolved]

NARRATIVE: CASE EVENT DATE: 20140801
